FAERS Safety Report 8265439-5 (Version None)
Quarter: 2012Q2

REPORT INFORMATION
  Report Type: 
  Country: None (occurrence: None)
  Receive Date: 20120406
  Receipt Date: 20120403
  Transmission Date: 20120825
  Serious: Yes (Death, Disabling, Other)
  Sender: FDA-Public Use
  Company Number: US-PFIZER INC-2012052640

PATIENT
  Sex: Male
  Weight: 72.562 kg

DRUGS (1)
  1. SUTENT [Suspect]
     Indication: RENAL CANCER
     Dosage: 37.5 MG (1 CAPSULE OF 12.5 MG AND 1 CAPSULE OF 25 MG), 1X/DAY, 4/2 SCHEDULE
     Route: 048
     Dates: start: 20120130, end: 20120227

REACTIONS (11)
  - DEATH [None]
  - HEARING IMPAIRED [None]
  - BACK PAIN [None]
  - DIARRHOEA [None]
  - HEART RATE ABNORMAL [None]
  - ABASIA [None]
  - HAEMORRHAGE [None]
  - OEDEMA PERIPHERAL [None]
  - CHEST DISCOMFORT [None]
  - TONGUE DISORDER [None]
  - DYSPNOEA [None]
